FAERS Safety Report 10632994 (Version 2)
Quarter: 2015Q1

REPORT INFORMATION
  Report Type: Spontaneous
  Country: US (occurrence: US)
  Receive Date: 20141205
  Receipt Date: 20150114
  Transmission Date: 20150720
  Serious: No
  Sender: FDA-Public Use
  Company Number: US-BRISTOL-MYERS SQUIBB COMPANY-21674924

PATIENT
  Age: 25 Year
  Sex: Female

DRUGS (1)
  1. SPRYCEL [Suspect]
     Active Substance: DASATINIB
     Indication: CHRONIC MYELOID LEUKAEMIA
     Dosage: 100 MG, QD
     Route: 048

REACTIONS (7)
  - Confusional state [Unknown]
  - Back pain [Unknown]
  - Nausea [Unknown]
  - Pain [Unknown]
  - Feeling abnormal [Unknown]
  - Fatigue [Unknown]
  - Arthralgia [Unknown]

NARRATIVE: CASE EVENT DATE: 20141201
